FAERS Safety Report 23986627 (Version 1)
Quarter: 2024Q2

REPORT INFORMATION
  Report Type: Spontaneous
  Country: US (occurrence: None)
  Receive Date: 20240617
  Receipt Date: 20240617
  Transmission Date: 20240715
  Serious: Yes (Hospitalization)
  Sender: FDA-Public Use
  Company Number: None

PATIENT
  Age: 48 Year
  Sex: Female
  Weight: 63.45 kg

DRUGS (3)
  1. SEMAGLUTIDE [Suspect]
     Active Substance: SEMAGLUTIDE
     Indication: Weight decreased
     Dosage: OTHER QUANTITY : 40 INJECTION(S);?OTHER FREQUENCY : WEEKLY;?OTHER ROUTE : INJECTION IN THE STOMACH;?
     Route: 050
     Dates: start: 20230814, end: 20240607
  2. Wellbtrin [Concomitant]
  3. VALTREX [Concomitant]
     Active Substance: VALACYCLOVIR HYDROCHLORIDE

REACTIONS (1)
  - Appendicitis [None]

NARRATIVE: CASE EVENT DATE: 20240613
